FAERS Safety Report 8805562 (Version 1)
Quarter: 2012Q4

REPORT INFORMATION
  Report Type: 
  Country: MX (occurrence: MX)
  Receive Date: 20120924
  Receipt Date: 20120924
  Transmission Date: 20130627
  Serious: Yes (Other)
  Sender: FDA-Public Use
  Company Number: MX-UCBSA-066637

PATIENT
  Age: 23 Year
  Sex: Male
  Weight: 59 kg

DRUGS (1)
  1. VIMPAT [Suspect]
     Indication: EPILEPSY
     Route: 048
     Dates: start: 20120823, end: 20120824

REACTIONS (3)
  - Convulsion [Recovered/Resolved]
  - Erythema [Recovered/Resolved]
  - Aggression [Recovered/Resolved]
